FAERS Safety Report 5628607-4 (Version None)
Quarter: 2008Q1

REPORT INFORMATION
  Report Type: 
  Country: None (occurrence: None)
  Receive Date: 20080214
  Receipt Date: 20080214
  Transmission Date: 20080703
  Serious: No
  Sender: FDA-Public Use
  Company Number: None

PATIENT
  Age: 22 Year
  Sex: Male
  Weight: 83 kg

DRUGS (1)
  1. HALOPERIDOL [Suspect]
     Indication: AGITATION
     Dosage: 10MG PRN IV
     Route: 042
     Dates: start: 20080203, end: 20080204

REACTIONS (1)
  - ELECTROCARDIOGRAM QT PROLONGED [None]
